FAERS Safety Report 6248683-8 (Version None)
Quarter: 2009Q2

REPORT INFORMATION
  Report Type: 
  Country: None (occurrence: None)
  Receive Date: 20090629
  Receipt Date: 20080730
  Transmission Date: 20091009
  Serious: No
  Sender: FDA-Public Use
  Company Number: US-TYCO HEALTHCARE/MALLINCKRODT-T200801233

PATIENT

DRUGS (2)
  1. TECHNESCAN MAG3 [Suspect]
     Indication: RENAL SCAN
     Dosage: UNK, SINGLE
     Dates: start: 20080729, end: 20080729
  2. ULTRA-TECHNEKOW [Concomitant]
     Indication: RADIOISOTOPE SCAN
     Dosage: UNK, SINGLE
     Dates: start: 20080729, end: 20080729

REACTIONS (1)
  - DRUG DISPENSING ERROR [None]
